FAERS Safety Report 10196376 (Version 1)
Quarter: 2014Q2

REPORT INFORMATION
  Report Type: Spontaneous
  Country: US (occurrence: None)
  Receive Date: 20140522
  Receipt Date: 20140522
  Transmission Date: 20141212
  Serious: Yes (Other)
  Sender: FDA-Public Use
  Company Number: SYM-2014-20775

PATIENT
  Age: 51 Year
  Sex: Male

DRUGS (8)
  1. BUPROPION HYDROCHLORIDE [Suspect]
     Indication: PRODUCT USED FOR UNKNOWN INDICATION
     Route: 048
     Dates: start: 201308
  2. LAMOTRIGINE [Suspect]
     Indication: DEPRESSION
     Route: 048
     Dates: start: 201308
  3. CELEXA [Suspect]
     Indication: PRODUCT USED FOR UNKNOWN INDICATION
     Route: 048
     Dates: start: 2011, end: 2013
  4. VITAMIN B COMPLEX (VITAMIN B COMPLEX) [Concomitant]
  5. TESTOSTERONE (TESTOSTERONE) [Concomitant]
  6. ONE-A-DAY MEN^S(ASCORBIC ACID  W/CHROMIUM/COPPER/CYANOCOBALAMI)(ASCORBIC ACID, PYRIDOXINE HYDROCHLORIDE, TOCOPHEROL, FOLIC ACID, THIAMINE, NICOTINIC ACID, CYANOCOBALAMIN, RETINOL, PANTOTHENIC ACID, RIBOFLAVIN, MAGNESIUM, MANGANESE, MOLYBDENUM, POTASSIUM, [Concomitant]
  7. ISOSORBIDE DINITRATE (ISOSORBIDE DINITRATE) (ISOSORBIDE DINITRATE) [Concomitant]
  8. FISH OIL (FISH OIL) [Concomitant]

REACTIONS (2)
  - Bone loss [None]
  - Device failure [None]
